FAERS Safety Report 4358355-2 (Version None)
Quarter: 2004Q2

REPORT INFORMATION
  Report Type: 
  Country: None (occurrence: None)
  Receive Date: 20040514
  Receipt Date: 20040505
  Transmission Date: 20050107
  Serious: Yes (Hospitalization)
  Sender: FDA-Public Use
  Company Number: PHRM2004FR01741

PATIENT
  Age: 40 Year
  Sex: Female

DRUGS (3)
  1. GLEEVEC [Suspect]
     Indication: CHRONIC MYELOID LEUKAEMIA
     Route: 048
     Dates: start: 20030215
  2. STABLON [Concomitant]
     Indication: DEPRESSION
     Route: 048
     Dates: start: 20030415
  3. LEXOMIL [Concomitant]
     Indication: ANXIETY
     Route: 048
     Dates: start: 20030415

REACTIONS (4)
  - BONE PAIN [None]
  - HAEMOGLOBIN DECREASED [None]
  - INTERVERTEBRAL DISC DISORDER [None]
  - PANCYTOPENIA [None]
